FAERS Safety Report 6288648-3 (Version None)
Quarter: 2009Q3

REPORT INFORMATION
  Report Type: 
  Country: None (occurrence: None)
  Receive Date: 20090729
  Receipt Date: 20090722
  Transmission Date: 20100115
  Serious: Yes (Other)
  Sender: FDA-Public Use
  Company Number: CA-MERCK-0907CAN00123

PATIENT
  Age: 53 Year
  Sex: Male
  Weight: 91 kg

DRUGS (2)
  1. SINGULAIR [Suspect]
     Route: 048
  2. SINGULAIR [Suspect]
     Route: 048

REACTIONS (3)
  - APATHY [None]
  - ASTHENIA [None]
  - DEPRESSED MOOD [None]
